FAERS Safety Report 14612425 (Version 2)
Quarter: 2018Q1

REPORT INFORMATION
  Report Type: Spontaneous
  Country: JP (occurrence: JP)
  Receive Date: 20180308
  Receipt Date: 20180328
  Transmission Date: 20180509
  Serious: Yes (Other)
  Sender: FDA-Public Use
  Company Number: JP-ROCHE-2081615

PATIENT
  Age: 70 Year
  Sex: Male

DRUGS (5)
  1. INDOCYANINE GREEN. [Concomitant]
     Active Substance: INDOCYANINE GREEN
     Indication: FUNDOSCOPY
     Dosage: UNK
     Route: 065
  2. EYLEA [Concomitant]
     Active Substance: AFLIBERCEPT
     Dosage: 3 TIMES
     Route: 031
     Dates: start: 2017
  3. LUCENTIS [Suspect]
     Active Substance: RANIBIZUMAB
     Indication: RETINAL VEIN OCCLUSION
     Dosage: UNK
     Route: 031
  4. FLUORESCEIN [Concomitant]
     Active Substance: FLUORESCEIN
     Indication: FUNDOSCOPY
     Dosage: UNK
     Route: 065
  5. EYLEA [Concomitant]
     Active Substance: AFLIBERCEPT
     Indication: MACULAR OEDEMA
     Dosage: 4 TIMES
     Route: 031
     Dates: start: 2016

REACTIONS (2)
  - Retinal exudates [Unknown]
  - Retinal vascular disorder [Unknown]

NARRATIVE: CASE EVENT DATE: 201701
